FAERS Safety Report 7005659-0 (Version None)
Quarter: 2010Q3

REPORT INFORMATION
  Report Type: 
  Country: None (occurrence: None)
  Receive Date: 20100921
  Receipt Date: 20100913
  Transmission Date: 20110219
  Serious: Yes (Other)
  Sender: FDA-Public Use
  Company Number: B0671213A

PATIENT
  Sex: Male

DRUGS (11)
  1. LAMICTAL [Suspect]
     Indication: EPILEPSY
     Route: 048
     Dates: start: 20100609, end: 20100801
  2. PHENYTOIN [Concomitant]
     Indication: EPILEPSY
     Route: 048
     Dates: start: 20100609
  3. TAKEPRON [Concomitant]
     Route: 048
  4. DIOVAN [Concomitant]
     Route: 048
  5. TAMSULOSIN HCL [Concomitant]
     Route: 048
  6. UBRETID [Concomitant]
     Route: 048
  7. BESACOLIN [Concomitant]
     Route: 048
  8. PRORENAL [Concomitant]
     Route: 048
  9. DIGOXIN [Concomitant]
     Route: 048
  10. WARFARIN SODIUM [Concomitant]
     Route: 048
  11. TEGRETOL [Concomitant]
     Indication: EPILEPSY
     Route: 048
     Dates: start: 20100714

REACTIONS (1)
  - HALLUCINATION [None]
